FAERS Safety Report 12321115 (Version 3)
Quarter: 2016Q2

REPORT INFORMATION
  Report Type: Spontaneous
  Country: IE (occurrence: IE)
  Receive Date: 20160502
  Receipt Date: 20160609
  Transmission Date: 20160815
  Serious: Yes (Death, Other)
  Sender: FDA-Public Use
  Company Number: IE-HOSPIRA-3268332

PATIENT
  Age: 33 Year
  Sex: Female
  Weight: 63 kg

DRUGS (9)
  1. DIPEPTIVEN [Concomitant]
     Active Substance: GLUTAMINE
     Dosage: 200 MG
     Dates: start: 20140909, end: 20140912
  2. NEXIUM [Concomitant]
     Active Substance: ESOMEPRAZOLE MAGNESIUM
     Dosage: 40 MG, FREQ: 2 DAY; INTERVAL: 1
     Dates: start: 20140901, end: 20140912
  3. MEROPENEM. [Concomitant]
     Active Substance: MEROPENEM
     Indication: PERITONITIS
     Dosage: 2 G, FREQ: 3 DAY; INTERVAL: 1
     Route: 042
     Dates: start: 20140908, end: 20140913
  4. CASPOFUNGIN [Concomitant]
     Active Substance: CASPOFUNGIN
     Dosage: 50 MG
     Dates: start: 20140904, end: 20140911
  5. LINEZOLID. [Concomitant]
     Active Substance: LINEZOLID
     Dosage: 600 MG, FREQ: 2 DAY; INTERVAL: 1
     Dates: start: 20140905, end: 20140913
  6. DEXMEDETOMIDINE HYDROCHLORIDE. [Suspect]
     Active Substance: DEXMEDETOMIDINE HYDROCHLORIDE
     Dosage: 100 MCG/ML AT 20-24 ML/HR
     Route: 042
     Dates: start: 20140911, end: 20140913
  7. NOREPINEPHRINE [Concomitant]
     Active Substance: NOREPINEPHRINE\NOREPINEPHRINE BITARTRATE
     Indication: HYPOTENSION
     Dosage: 6 MG IN 50 ML
     Dates: start: 20140905, end: 20140912
  8. PARACETAMOL [Concomitant]
     Active Substance: ACETAMINOPHEN
     Dosage: 1 G, FREQ: 4 DAY; INTERVAL: 1
     Dates: start: 20140905, end: 20140913
  9. CLEXANE [Concomitant]
     Active Substance: ENOXAPARIN SODIUM
     Dosage: 40 MG
     Dates: start: 20140902, end: 20140912

REACTIONS (4)
  - Hypotension [Fatal]
  - Pyrexia [Fatal]
  - Sepsis [Fatal]
  - Cardiac arrest [Fatal]

NARRATIVE: CASE EVENT DATE: 20140912
